FAERS Safety Report 19306193 (Version 2)
Quarter: 2021Q2

REPORT INFORMATION
  Report Type: Spontaneous
  Country: US (occurrence: US)
  Receive Date: 20210526
  Receipt Date: 20210622
  Transmission Date: 20210717
  Serious: Yes (Other)
  Sender: FDA-Public Use
  Company Number: US-ASTRAZENECA-2021A455821

PATIENT
  Age: 73 Year
  Sex: Female
  Weight: 79.8 kg

DRUGS (4)
  1. SYMBICORT [Suspect]
     Active Substance: BUDESONIDE\FORMOTEROL FUMARATE DIHYDRATE
     Indication: CHRONIC OBSTRUCTIVE PULMONARY DISEASE
     Dosage: 160/4.5 MCG, TWICE DAILY INHALATIONS
     Route: 055
  2. SYMBICORT [Suspect]
     Active Substance: BUDESONIDE\FORMOTEROL FUMARATE DIHYDRATE
     Indication: ASTHMA-CHRONIC OBSTRUCTIVE PULMONARY DISEASE OVERLAP SYNDROME
     Dosage: 160/4.5 MCG, TWICE DAILY INHALATIONS
     Route: 055
  3. SPIRIVA [Concomitant]
     Active Substance: TIOTROPIUM BROMIDE MONOHYDRATE
  4. PROAIR HFA [Concomitant]
     Active Substance: ALBUTEROL SULFATE

REACTIONS (10)
  - Drug intolerance [Unknown]
  - Lung neoplasm malignant [Unknown]
  - Palpitations [Unknown]
  - Drug hypersensitivity [Unknown]
  - Product dose omission issue [Not Recovered/Not Resolved]
  - Nervousness [Unknown]
  - Malaise [Unknown]
  - Wheezing [Unknown]
  - Hypertension [Unknown]
  - Tachycardia [Recovered/Resolved]

NARRATIVE: CASE EVENT DATE: 2020
